FAERS Safety Report 6763651-5 (Version None)
Quarter: 2010Q2

REPORT INFORMATION
  Report Type: 
  Country: None (occurrence: None)
  Receive Date: 20100610
  Receipt Date: 20100530
  Transmission Date: 20101027
  Serious: Yes (Other)
  Sender: FDA-Public Use
  Company Number: IN-BAXTER-2010BH015012

PATIENT
  Age: 63 Year
  Sex: Male

DRUGS (4)
  1. ALBUMIN (HUMAN) [Suspect]
     Indication: HYPOALBUMINAEMIA
     Route: 042
     Dates: start: 20100530, end: 20100530
  2. CILASTATIN W/IMIPENEM [Concomitant]
     Route: 042
     Dates: start: 20100529
  3. AMPICILLIN [Concomitant]
     Route: 042
     Dates: start: 20100529
  4. VITAMIN K TAB [Concomitant]
     Route: 042
     Dates: start: 20100531

REACTIONS (2)
  - CHILLS [None]
  - RESPIRATORY DISTRESS [None]
